FAERS Safety Report 13201406 (Version 1)
Quarter: 2017Q1

REPORT INFORMATION
  Report Type: Spontaneous
  Country: CA (occurrence: CA)
  Receive Date: 20170209
  Receipt Date: 20170209
  Transmission Date: 20170428
  Serious: Yes (Other)
  Sender: FDA-Public Use
  Company Number: CA-CONCORDIA PHARMACEUTICALS INC.-GSH201702-000732

PATIENT
  Age: 38 Year
  Sex: Male

DRUGS (5)
  1. PLAQUENIL [Suspect]
     Active Substance: HYDROXYCHLOROQUINE SULFATE
     Indication: RHEUMATOID ARTHRITIS
     Route: 065
     Dates: start: 2015, end: 2016
  2. METHOTREXATE SODIUM. [Suspect]
     Active Substance: METHOTREXATE SODIUM
     Indication: RHEUMATOID ARTHRITIS
     Route: 065
     Dates: start: 20150922, end: 201606
  3. NAPROSYN [Concomitant]
     Active Substance: NAPROXEN
  4. HUMIRA [Concomitant]
     Active Substance: ADALIMUMAB
  5. XELJANZ [Concomitant]
     Active Substance: TOFACITINIB CITRATE
     Dates: start: 20161220

REACTIONS (5)
  - Aggression [Unknown]
  - Fatigue [Unknown]
  - Gastrointestinal disorder [Unknown]
  - Nausea [Unknown]
  - Mood altered [Unknown]
